FAERS Safety Report 5663757-8 (Version None)
Quarter: 2008Q1

REPORT INFORMATION
  Report Type: 
  Country: None (occurrence: None)
  Receive Date: 20080311
  Receipt Date: 20080304
  Transmission Date: 20080703
  Serious: Yes (Hospitalization)
  Sender: FDA-Public Use
  Company Number: T08-USA-00519-01

PATIENT
  Age: 22 Year
  Sex: Female

DRUGS (4)
  1. CERVIDIL [Suspect]
     Indication: LABOUR INDUCTION
     Dosage: 10 MG ONCE VG
     Route: 067
     Dates: start: 20070110, end: 20070111
  2. CERVIDIL [Suspect]
     Indication: UTERINE CERVIX DILATION PROCEDURE
     Dosage: 10 MG ONCE VG
     Route: 067
     Dates: start: 20070110, end: 20070111
  3. BENADRYL [Concomitant]
  4. PENICILLIN [Concomitant]

REACTIONS (4)
  - CAESAREAN SECTION [None]
  - DRUG EXPOSURE DURING PREGNANCY [None]
  - FOETAL HEART RATE DECELERATION [None]
  - MATERNAL CONDITION AFFECTING FOETUS [None]
